FAERS Safety Report 14570472 (Version 1)
Quarter: 2018Q1

REPORT INFORMATION
  Report Type: Spontaneous
  Country: IT (occurrence: IT)
  Receive Date: 20180226
  Receipt Date: 20180226
  Transmission Date: 20180509
  Serious: Yes (Life-Threatening)
  Sender: FDA-Public Use
  Company Number: IT-ACCORD-063870

PATIENT
  Age: 74 Year
  Sex: Female
  Weight: 170 kg

DRUGS (1)
  1. FLUOROURACIL AHCL ACCORD HEALTHCARE LIMITED [Suspect]
     Active Substance: FLUOROURACIL
     Indication: COLON CANCER
     Dosage: STRENGTH: 50 MG/ML
     Route: 042
     Dates: start: 20170926, end: 20171222

REACTIONS (1)
  - Intestinal pseudo-obstruction [Recovered/Resolved]

NARRATIVE: CASE EVENT DATE: 20180101
